FAERS Safety Report 14767226 (Version 2)
Quarter: 2019Q1

REPORT INFORMATION
  Report Type: Report from Study
  Country: DE (occurrence: DE)
  Receive Date: 20180417
  Receipt Date: 20190220
  Transmission Date: 20190417
  Serious: Yes (Hospitalization)
  Sender: FDA-Public Use
  Company Number: DE-ROCHE-2109061

PATIENT
  Sex: Female

DRUGS (2)
  1. MABTHERA [Suspect]
     Active Substance: RITUXIMAB
     Indication: RHEUMATOID ARTHRITIS
     Route: 065
  2. PREDNISOLON [Concomitant]
     Active Substance: PREDNISOLONE

REACTIONS (1)
  - Non-small cell lung cancer recurrent [Not Recovered/Not Resolved]

NARRATIVE: CASE EVENT DATE: 201802
